FAERS Safety Report 7603210-5 (Version None)
Quarter: 2011Q3

REPORT INFORMATION
  Report Type: 
  Country: None (occurrence: None)
  Receive Date: 20110712
  Receipt Date: 20110624
  Transmission Date: 20111222
  Serious: No
  Sender: FDA-Public Use
  Company Number: US-B.I. PHARMACEUTICALS,INC./RIDGEFIELD-2011-BP-02008BP

PATIENT
  Sex: Male

DRUGS (9)
  1. PRADAXA [Suspect]
     Indication: ATRIAL FIBRILLATION
     Dosage: 300 MG
     Route: 048
     Dates: start: 20110101
  2. BYETTA [Concomitant]
     Indication: DIABETES MELLITUS
     Dosage: INJ
  3. METFORMIN HCL [Concomitant]
     Indication: DIABETES MELLITUS
     Dosage: 500 MG
     Route: 048
     Dates: start: 20090101
  4. DILTIAZEM [Concomitant]
     Indication: ATRIAL FIBRILLATION
     Dosage: 180 MG
     Dates: start: 20040101
  5. UROXATRAL [Concomitant]
     Indication: PROSTATITIS
     Dosage: 10 MG
     Route: 048
     Dates: start: 20100101
  6. ALTACE [Concomitant]
     Indication: HYPERTENSION
     Dosage: 10 MG
     Dates: start: 20080101
  7. ZETIA [Concomitant]
     Indication: BLOOD CHOLESTEROL INCREASED
     Dosage: 10 MG
     Dates: start: 20100101
  8. LANOXIN [Concomitant]
     Indication: ATRIAL FIBRILLATION
     Dosage: 0.25 MG
     Route: 048
     Dates: start: 20040101
  9. LIPITOR [Concomitant]
     Indication: BLOOD CHOLESTEROL INCREASED
     Dosage: 80 MG
     Dates: start: 20100101

REACTIONS (10)
  - BLOOD GLUCOSE INCREASED [None]
  - ABDOMINAL PAIN UPPER [None]
  - ABDOMINAL DISCOMFORT [None]
  - INCONTINENCE [None]
  - HAEMORRHOIDAL HAEMORRHAGE [None]
  - CHROMATURIA [None]
  - RED BLOOD CELLS URINE POSITIVE [None]
  - CONSTIPATION [None]
  - HAEMATURIA [None]
  - BLOOD URINE PRESENT [None]
